FAERS Safety Report 5442453-6 (Version None)
Quarter: 2007Q3

REPORT INFORMATION
  Report Type: 
  Country: None (occurrence: None)
  Receive Date: 20070904
  Receipt Date: 20070823
  Transmission Date: 20080115
  Serious: Yes (Other)
  Sender: FDA-Public Use
  Company Number: GB-PFIZER INC-2007071894

PATIENT

DRUGS (1)
  1. VARENICLINE TABLETS [Suspect]
     Indication: SMOKING CESSATION THERAPY
     Route: 048
     Dates: start: 20070622, end: 20070729

REACTIONS (4)
  - ABNORMAL DREAMS [None]
  - IRRITABILITY [None]
  - MOOD SWINGS [None]
  - PERSONALITY CHANGE [None]
